FAERS Safety Report 12470805 (Version 1)
Quarter: 2016Q2

REPORT INFORMATION
  Report Type: Other
  Country: US (occurrence: US)
  Receive Date: 20160616
  Receipt Date: 20160616
  Transmission Date: 20160815
  Serious: Yes (Hospitalization, Other)
  Sender: FDA-Public Use
  Company Number: US-ACORDA-ACO_124934_2016

PATIENT
  Age: 69 Year
  Sex: Female

DRUGS (1)
  1. AMPYRA [Suspect]
     Active Substance: DALFAMPRIDINE
     Indication: PRODUCT USED FOR UNKNOWN INDICATION
     Route: 065

REACTIONS (5)
  - Hypokinesia [Unknown]
  - Multiple sclerosis relapse [Unknown]
  - Cystitis [Unknown]
  - Muscular weakness [Unknown]
  - Colitis [Unknown]

NARRATIVE: CASE EVENT DATE: 201603
